FAERS Safety Report 5900250-9 (Version None)
Quarter: 2008Q3

REPORT INFORMATION
  Report Type: 
  Country: None (occurrence: None)
  Receive Date: 20080926
  Receipt Date: 20080922
  Transmission Date: 20090109
  Serious: Yes (Other)
  Sender: FDA-Public Use
  Company Number: PHEH2008US08460

PATIENT
  Age: 75 Year
  Sex: Female
  Weight: 69.388 kg

DRUGS (1)
  1. RECLAST [Suspect]
     Indication: OSTEOARTHRITIS
     Dosage: 5 MG ONCE PER YEAR
     Dates: start: 20080910

REACTIONS (3)
  - ABASIA [None]
  - BONE PAIN [None]
  - PYREXIA [None]
